FAERS Safety Report 8522450-4 (Version None)
Quarter: 2012Q3

REPORT INFORMATION
  Report Type: 
  Country: None (occurrence: None)
  Receive Date: 20120719
  Receipt Date: 20120710
  Transmission Date: 20120928
  Serious: No
  Sender: FDA-Public Use
  Company Number: US-TEVA-348027USA

PATIENT
  Sex: Female

DRUGS (12)
  1. JANUMET [Concomitant]
  2. ASMANEX TWISTHALER [Concomitant]
     Indication: ASTHMA
  3. NUVIGIL [Suspect]
     Indication: SLEEP APNOEA SYNDROME
  4. UNK ANTIDEPRESSANT [Concomitant]
  5. XYREM [Concomitant]
  6. GLIMEPIRIDE [Concomitant]
  7. ACTOPLUS MET [Concomitant]
     Indication: DIABETES MELLITUS
  8. LISINOPRIL [Concomitant]
     Indication: HYPERTENSION
  9. NUVIGIL [Suspect]
     Indication: NARCOLEPSY
     Dosage: QAM
     Route: 048
     Dates: start: 20090101
  10. CYMBALTA [Concomitant]
  11. SIMVASTATIN [Concomitant]
  12. OXYGEN [Concomitant]

REACTIONS (2)
  - DRUG EFFECT DECREASED [None]
  - HYPERSOMNIA [None]
